FAERS Safety Report 6321394-6 (Version None)
Quarter: 2009Q3

REPORT INFORMATION
  Report Type: 
  Country: None (occurrence: None)
  Receive Date: 20090822
  Receipt Date: 20090119
  Transmission Date: 20100115
  Serious: No
  Sender: FDA-Public Use
  Company Number: US-ABBOTT-09P-163-0498675-00

PATIENT
  Age: 48 Year
  Sex: Male

DRUGS (3)
  1. NIASPAN [Suspect]
     Indication: BLOOD TRIGLYCERIDES INCREASED
     Dosage: QHS
     Route: 048
     Dates: start: 20090113
  2. ASPIRIN [Concomitant]
     Indication: DRUG USE FOR UNKNOWN INDICATION
  3. UNKNOWN HYPERTENSION MEDICATION [Concomitant]
     Indication: HYPERTENSION

REACTIONS (3)
  - FEELING HOT [None]
  - FLUSHING [None]
  - PARAESTHESIA [None]
